FAERS Safety Report 6803003-2 (Version None)
Quarter: 2010Q2

REPORT INFORMATION
  Report Type: 
  Country: None (occurrence: None)
  Receive Date: 20100628
  Receipt Date: 20100616
  Transmission Date: 20101027
  Serious: Yes (Death, Life-Threatening, Hospitalization)
  Sender: FDA-Public Use
  Company Number: JP-PFIZER INC-2010057672

PATIENT
  Age: 53 Year
  Sex: Male
  Weight: 75.3 kg

DRUGS (10)
  1. SUNITINIB MALATE [Suspect]
     Indication: RENAL CELL CARCINOMA
     Dosage: 50 MG, 1X/DAY
     Route: 048
     Dates: start: 20090731, end: 20091207
  2. COTRIM [Concomitant]
     Route: 048
  3. GASTER [Concomitant]
     Route: 048
  4. DECADRON [Concomitant]
     Route: 048
  5. LOXONIN [Concomitant]
     Route: 048
  6. SELBEX [Concomitant]
     Route: 048
  7. MAGNESIUM OXIDE [Concomitant]
     Route: 048
  8. LENDORMIN [Concomitant]
     Route: 048
  9. EURODIN [Concomitant]
     Route: 048
  10. MORPHINE SULFATE HYDRATE [Concomitant]
     Route: 048

REACTIONS (3)
  - EPIDIDYMITIS [None]
  - HYPONATRAEMIA [None]
  - TUMOUR HAEMORRHAGE [None]
